FAERS Safety Report 25478685 (Version 1)
Quarter: 2025Q2

REPORT INFORMATION
  Report Type: Report from Study
  Country: CA (occurrence: CA)
  Receive Date: 20250625
  Receipt Date: 20250625
  Transmission Date: 20250717
  Serious: Yes (Other)
  Sender: OTSUKA
  Company Number: CA-MMM-Otsuka-8K2L4BVZ

PATIENT
  Age: 29 Year
  Sex: Female

DRUGS (1)
  1. TOLVAPTAN [Suspect]
     Active Substance: TOLVAPTAN
     Indication: Congenital cystic kidney disease
     Route: 048
     Dates: start: 20250505, end: 2025

REACTIONS (4)
  - Kidney infection [Unknown]
  - Cyst rupture [Unknown]
  - Flank pain [Unknown]
  - Abdominal discomfort [Unknown]

NARRATIVE: CASE EVENT DATE: 20250501
